FAERS Safety Report 20710106 (Version 2)
Quarter: 2022Q2

REPORT INFORMATION
  Report Type: Spontaneous
  Country: US (occurrence: US)
  Receive Date: 20220414
  Receipt Date: 20220420
  Transmission Date: 20220721
  Serious: Yes (Other)
  Sender: FDA-Public Use
  Company Number: US-MLMSERVICE-20220331-3453829-1

PATIENT
  Age: 2 Year
  Sex: Male

DRUGS (4)
  1. DOXORUBICIN HYDROCHLORIDE [Suspect]
     Active Substance: DOXORUBICIN HYDROCHLORIDE
     Indication: Retroperitoneal cancer
     Dosage: 2 CYCLIC
  2. VINCRISTINE SULFATE [Suspect]
     Active Substance: VINCRISTINE SULFATE
     Indication: Retroperitoneal cancer
     Dosage: 3 CYCLIC
  3. CYCLOPHOSPHAMIDE [Suspect]
     Active Substance: CYCLOPHOSPHAMIDE
     Indication: Retroperitoneal cancer
     Dosage: 3 CYCLIC
  4. ETOPOSIDE [Suspect]
     Active Substance: ETOPOSIDE
     Indication: Retroperitoneal cancer
     Dosage: CYCLIC

REACTIONS (3)
  - Pancytopenia [Unknown]
  - Nausea [Unknown]
  - Vomiting [Unknown]
